FAERS Safety Report 7065169-1 (Version None)
Quarter: 2010Q4

REPORT INFORMATION
  Report Type: 
  Country: None (occurrence: None)
  Receive Date: 20101019
  Receipt Date: 20101015
  Transmission Date: 20110411
  Serious: Yes (Death)
  Sender: FDA-Public Use
  Company Number: 20109411

PATIENT
  Sex: Female

DRUGS (3)
  1. LIORESAL [Suspect]
     Indication: MUSCLE SPASTICITY
     Dosage: 133 MCG, DAILY, INTRATHECAL
     Route: 037
  2. FENTANYL [Concomitant]
  3. BUPIVACAINE HCL [Concomitant]

REACTIONS (1)
  - DEVICE MALFUNCTION [None]
